FAERS Safety Report 9405187 (Version 2)
Quarter: 2013Q3

REPORT INFORMATION
  Report Type: Spontaneous
  Country: TR (occurrence: TR)
  Receive Date: 20130717
  Receipt Date: 20130729
  Transmission Date: 20140515
  Serious: Yes (Hospitalization)
  Sender: FDA-Public Use
  Company Number: TR-TEVA-418404ISR

PATIENT
  Age: 20 Year
  Sex: Male

DRUGS (2)
  1. DICLOFENAC [Suspect]
     Indication: SUICIDE ATTEMPT
     Dosage: MANY PILLS
     Route: 065
  2. METFORMIN [Suspect]
     Indication: SUICIDE ATTEMPT
     Route: 065

REACTIONS (3)
  - Acidosis [Recovered/Resolved]
  - Overdose [Recovered/Resolved]
  - Suicide attempt [Recovered/Resolved]
